FAERS Safety Report 4585735-2 (Version None)
Quarter: 2005Q1

REPORT INFORMATION
  Report Type: 
  Country: None (occurrence: None)
  Receive Date: 20050217
  Receipt Date: 20050208
  Transmission Date: 20050727
  Serious: Yes (Hospitalization, Other)
  Sender: FDA-Public Use
  Company Number: US-GLAXOSMITHKLINE-A0544465A

PATIENT
  Age: 42 Year
  Sex: Male
  Weight: 77 kg

DRUGS (2)
  1. ECOTRIN REGULAR STRENGTH TABLETS [Suspect]
     Indication: CHEST PAIN
     Route: 048
     Dates: start: 20041201, end: 20050117
  2. CHINESE HERBAL MEDICINE [Concomitant]
     Indication: HAEMORRHOIDS
     Route: 048

REACTIONS (3)
  - CHEST PAIN [None]
  - DISEASE RECURRENCE [None]
  - DYSPEPSIA [None]
